FAERS Safety Report 6600965-3 (Version None)
Quarter: 2010Q1

REPORT INFORMATION
  Report Type: 
  Country: None (occurrence: None)
  Receive Date: 20100225
  Receipt Date: 20100215
  Transmission Date: 20100710
  Serious: Yes (Death)
  Sender: FDA-Public Use
  Company Number: US-JNJFOC-20081007002

PATIENT
  Sex: Male
  Weight: 67.13 kg

DRUGS (2)
  1. DURAGESIC-100 [Suspect]
     Indication: PAIN
     Route: 062
  2. MARIJUANA [Concomitant]
     Indication: DRUG ABUSE
     Route: 055

REACTIONS (2)
  - DRUG ABUSE [None]
  - NARCOTIC INTOXICATION [None]
